FAERS Safety Report 24199579 (Version 2)
Quarter: 2024Q3

REPORT INFORMATION
  Report Type: Spontaneous
  Country: NZ (occurrence: NZ)
  Receive Date: 20240812
  Receipt Date: 20240904
  Transmission Date: 20241017
  Serious: Yes (Death, Hospitalization, Other)
  Sender: MYLAN
  Company Number: NZ-MYLANLABS-2024M1074622

PATIENT
  Age: 50 Year
  Sex: Female

DRUGS (5)
  1. CLOZARIL [Suspect]
     Active Substance: CLOZAPINE
     Indication: Schizophrenia
     Dosage: 250 MILLIGRAM, QD
     Route: 048
     Dates: start: 20230918, end: 202406
  2. LITHIUM CARBONATE [Concomitant]
     Active Substance: LITHIUM CARBONATE
     Dosage: 750 MILLIGRAM, QD
     Route: 048
  3. SERTRALINE [Concomitant]
     Active Substance: SERTRALINE HYDROCHLORIDE
     Dosage: 50 MILLIGRAM, QD
     Route: 048
  4. PROMETHAZINE [Concomitant]
     Active Substance: PROMETHAZINE HYDROCHLORIDE
     Dosage: 25.50 MILLIGRAM, PRN (NOCTE)
     Route: 048
  5. OMEPRAZOLE [Concomitant]
     Active Substance: OMEPRAZOLE
     Dosage: 20 MILLIGRAM, QD
     Route: 048

REACTIONS (17)
  - Metastatic neoplasm [Fatal]
  - Respiratory arrest [Fatal]
  - Abdominal pain [Unknown]
  - Pneumonia aspiration [Unknown]
  - COVID-19 [Unknown]
  - Small intestinal obstruction [Unknown]
  - Antipsychotic drug level increased [Unknown]
  - General physical health deterioration [Unknown]
  - Tachypnoea [Unknown]
  - Enteritis [Unknown]
  - Fall [Unknown]
  - Confusional state [Unknown]
  - Constipation [Unknown]
  - Diarrhoea [Unknown]
  - Tachycardia [Unknown]
  - Hypotension [Unknown]
  - Vomiting [Not Recovered/Not Resolved]

NARRATIVE: CASE EVENT DATE: 20240626
